FAERS Safety Report 5324339-0 (Version None)
Quarter: 2007Q2

REPORT INFORMATION
  Report Type: 
  Country: None (occurrence: None)
  Receive Date: 20070514
  Receipt Date: 20070507
  Transmission Date: 20071010
  Serious: Yes (Life-Threatening, Other)
  Sender: FDA-Public Use
  Company Number: US-PFIZER INC-2007037379

PATIENT
  Sex: Female

DRUGS (2)
  1. CETIRIZINE HCL [Suspect]
     Indication: URTICARIA
  2. FLAGYL [Suspect]
     Indication: VAGINAL INFECTION

REACTIONS (1)
  - ANAPHYLACTIC SHOCK [None]
